FAERS Safety Report 5271383-8 (Version None)
Quarter: 2007Q1

REPORT INFORMATION
  Report Type: 
  Country: None (occurrence: None)
  Receive Date: 20070315
  Receipt Date: 20070305
  Transmission Date: 20070707
  Serious: Yes (Hospitalization)
  Sender: FDA-Public Use
  Company Number: GXKR2007TR02266

PATIENT
  Age: 46 Year
  Sex: Female

DRUGS (2)
  1. SERTRALINE [Suspect]
     Indication: ANTIDEPRESSANT THERAPY
  2. ALPRAZOLAM [Concomitant]

REACTIONS (9)
  - CORNEAL EROSION [None]
  - DIPLOPIA [None]
  - DRY EYE [None]
  - EYE DISORDER [None]
  - HALO VISION [None]
  - MYDRIASIS [None]
  - SCAR [None]
  - VISION BLURRED [None]
  - VISUAL DISTURBANCE [None]
